FAERS Safety Report 25819476 (Version 2)
Quarter: 2025Q4

REPORT INFORMATION
  Report Type: Report from Study
  Country: US (occurrence: US)
  Receive Date: 20250918
  Receipt Date: 20251010
  Transmission Date: 20260118
  Serious: No
  Sender: SANOFI AVENTIS
  Company Number: US-SA-2025SA279441

PATIENT
  Age: 60 Year
  Sex: Male
  Weight: 91.62 kg

DRUGS (1)
  1. FABRAZYME [Suspect]
     Active Substance: AGALSIDASE BETA
     Indication: Fabry^s disease
     Dosage: 95 MG (TOTAL DOSE ADMINISTERED), QOW
     Route: 042
     Dates: start: 202106

REACTIONS (4)
  - Weight decreased [Unknown]
  - Paranasal sinus discomfort [Unknown]
  - Burning sensation [Unknown]
  - Paraesthesia [Unknown]

NARRATIVE: CASE EVENT DATE: 20250101
